FAERS Safety Report 9676689 (Version 1)
Quarter: 2013Q4

REPORT INFORMATION
  Report Type: Spontaneous
  Country: GB (occurrence: GB)
  Receive Date: 20131107
  Receipt Date: 20131107
  Transmission Date: 20140711
  Serious: Yes (Other)
  Sender: FDA-Public Use
  Company Number: GB-MYLANLABS-2013S1024498

PATIENT
  Age: 36 Year
  Sex: Male

DRUGS (12)
  1. PAROXETINE [Suspect]
     Indication: PRODUCT USED FOR UNKNOWN INDICATION
  2. SERTRALINE [Suspect]
     Indication: PRODUCT USED FOR UNKNOWN INDICATION
     Dates: end: 2011
  3. VENLAFAXINE [Suspect]
     Indication: PRODUCT USED FOR UNKNOWN INDICATION
     Dates: start: 1997, end: 2011
  4. ZOPICLONE [Suspect]
     Indication: PRODUCT USED FOR UNKNOWN INDICATION
     Dates: end: 2011
  5. AMISULPRIDE [Suspect]
     Indication: PRODUCT USED FOR UNKNOWN INDICATION
     Dates: start: 2011, end: 2011
  6. CHLORPROMAZINE [Suspect]
     Indication: PRODUCT USED FOR UNKNOWN INDICATION
     Dates: end: 2011
  7. LITHIUM [Suspect]
     Indication: PRODUCT USED FOR UNKNOWN INDICATION
     Dates: start: 199801, end: 2011
  8. SEROQUEL [Suspect]
     Indication: PSYCHOTIC DISORDER
     Route: 048
     Dates: start: 201202
  9. SEROQUEL [Suspect]
     Indication: PSYCHOTIC DISORDER
     Route: 048
     Dates: start: 2011
  10. SEROQUEL [Suspect]
     Indication: PSYCHOTIC DISORDER
     Dates: start: 2012
  11. SEROQUEL [Suspect]
     Indication: PSYCHOTIC DISORDER
     Route: 048
  12. QUETIAPINE FUMARATE [Suspect]
     Indication: PSYCHOTIC DISORDER
     Route: 048

REACTIONS (9)
  - Drug effect decreased [Unknown]
  - Drug ineffective [Unknown]
  - Feeling abnormal [Unknown]
  - Hypomania [Unknown]
  - Oromandibular dystonia [Unknown]
  - Convulsion [Unknown]
  - Insomnia [Unknown]
  - Suspected counterfeit product [Unknown]
  - Weight decreased [Unknown]
